FAERS Safety Report 5022146-X (Version None)
Quarter: 2006Q2

REPORT INFORMATION
  Report Type: 
  Country: None (occurrence: None)
  Receive Date: 20060605
  Receipt Date: 20060522
  Transmission Date: 20061013
  Serious: Yes (Life-Threatening, Hospitalization)
  Sender: FDA-Public Use
  Company Number: 230003M06ESP

PATIENT
  Age: 41 Year
  Sex: Female

DRUGS (2)
  1. REBIF [Suspect]
  2. CORTICOSTEROIDS [Concomitant]

REACTIONS (2)
  - COLON CANCER [None]
  - METASTASES TO LIVER [None]
